FAERS Safety Report 24241261 (Version 1)
Quarter: 2024Q3

REPORT INFORMATION
  Report Type: Spontaneous
  Country: BR (occurrence: BR)
  Receive Date: 20240823
  Receipt Date: 20240823
  Transmission Date: 20241017
  Serious: Yes (Other)
  Sender: ROCHE
  Company Number: BR-ROCHE-10000061800

PATIENT
  Age: 74 Year
  Sex: Female

DRUGS (7)
  1. PHESGO [Suspect]
     Active Substance: HYALURONIDASE-ZZXF\PERTUZUMAB\TRASTUZUMAB
     Indication: HER2 positive breast cancer
     Dosage: LOADING DOSE: 1200 MG/600 MG
     Route: 065
  2. PHESGO [Suspect]
     Active Substance: HYALURONIDASE-ZZXF\PERTUZUMAB\TRASTUZUMAB
     Route: 065
  3. TAXOL [Concomitant]
     Active Substance: PACLITAXEL
     Indication: HER2 positive breast cancer
  4. ANASTROZOLE [Concomitant]
     Active Substance: ANASTROZOLE
     Indication: HER2 positive breast cancer
  5. ATENOLOL [Concomitant]
     Active Substance: ATENOLOL
     Indication: Hypertension
  6. LOSARTAN [Concomitant]
     Active Substance: LOSARTAN\LOSARTAN POTASSIUM
     Indication: Hypertension
  7. PURAN [Concomitant]
     Active Substance: LEVOTHYROXINE SODIUM
     Indication: Hypothyroidism

REACTIONS (2)
  - Therapy partial responder [Unknown]
  - Weight increased [Unknown]
